FAERS Safety Report 7823556-5 (Version None)
Quarter: 2011Q4

REPORT INFORMATION
  Report Type: 
  Country: None (occurrence: None)
  Receive Date: 20111019
  Receipt Date: 20110720
  Transmission Date: 20120403
  Serious: Yes (Other)
  Sender: FDA-Public Use
  Company Number: US-BAYER-2011-046689

PATIENT
  Age: 88 Year
  Sex: Male

DRUGS (1)
  1. NEXAVAR [Suspect]
     Indication: MALIGNANT SOFT TISSUE NEOPLASM
     Dosage: 200 MG, BID
     Route: 048
     Dates: start: 20110106, end: 20110602

REACTIONS (3)
  - ASTHENIA [None]
  - SYNCOPE [None]
  - FATIGUE [None]
